FAERS Safety Report 4565591-9 (Version None)
Quarter: 2005Q1

REPORT INFORMATION
  Report Type: 
  Country: None (occurrence: None)
  Receive Date: 20050126
  Receipt Date: 20050107
  Transmission Date: 20050727
  Serious: Yes (Other)
  Sender: FDA-Public Use
  Company Number: USA050187792

PATIENT
  Age: 58 Year
  Sex: Female
  Weight: 42 kg

DRUGS (12)
  1. FORTEO [Suspect]
     Indication: OSTEOPOROSIS
     Dates: start: 20041221, end: 20041225
  2. REZULIN [Concomitant]
  3. MULTI-VITAMIN [Concomitant]
  4. CARBAMAZEPINE [Concomitant]
  5. ASPIRIN [Concomitant]
  6. PREDNISONE [Concomitant]
  7. METOPROLOL [Concomitant]
  8. LORATADINE [Concomitant]
  9. WARFARIN SODIUM [Concomitant]
  10. PRAVACHOL [Concomitant]
  11. METHOTREXATE [Concomitant]
  12. FOLIC ACID [Concomitant]

REACTIONS (5)
  - AGEUSIA [None]
  - FACIAL PALSY [None]
  - HYPOAESTHESIA [None]
  - HYPOAESTHESIA ORAL [None]
  - SWELLING FACE [None]
